FAERS Safety Report 18200013 (Version 1)
Quarter: 2020Q3

REPORT INFORMATION
  Report Type: Spontaneous
  Country: DE (occurrence: DE)
  Receive Date: 20200826
  Receipt Date: 20200826
  Transmission Date: 20201103
  Serious: Yes (Other)
  Sender: FDA-Public Use
  Company Number: NVSC2020DE232222

PATIENT
  Sex: Female

DRUGS (4)
  1. SANDOSTATIN LAR DEPOT [Suspect]
     Active Substance: OCTREOTIDE ACETATE
     Indication: NEUROENDOCRINE TUMOUR
     Dosage: 30 MG, Q4W
     Route: 065
     Dates: start: 2013
  2. SANDOSTATIN LAR DEPOT [Suspect]
     Active Substance: OCTREOTIDE ACETATE
  3. SANDOSTATIN LAR DEPOT [Suspect]
     Active Substance: OCTREOTIDE ACETATE
     Dosage: 30 MG, Q3W
     Route: 065
     Dates: start: 201910
  4. FEMARA [Suspect]
     Active Substance: LETROZOLE
     Indication: BREAST CANCER
     Dosage: UNK (STARTED 10 YEARS AGO STOP ABOUT 6 WEEKS AGO)
     Route: 065

REACTIONS (7)
  - Blood chromogranin A increased [Unknown]
  - Weight decreased [Unknown]
  - Head discomfort [Unknown]
  - Serum serotonin increased [Unknown]
  - Fatigue [Unknown]
  - Bladder disorder [Unknown]
  - Abdominal pain [Unknown]
